FAERS Safety Report 10270157 (Version 1)
Quarter: 2014Q2

REPORT INFORMATION
  Report Type: Spontaneous
  Country: AU (occurrence: None)
  Receive Date: 20140626
  Receipt Date: 20140626
  Transmission Date: 20141212
  Serious: Yes (Hospitalization, Other)
  Sender: FDA-Public Use
  Company Number: AUR-APL-2014-06251

PATIENT
  Age: 67 Year
  Sex: Male

DRUGS (11)
  1. METFORMIN 1000MG [Suspect]
     Indication: TYPE 2 DIABETES MELLITUS
     Dosage: 1000 MG, TWO TIMES A DAY, UNKNOWN
  2. PERINDOPRIL (PERINDOPRIL) [Suspect]
     Indication: PRODUCT USED FOR UNKNOWN INDICATION
     Dosage: 5 MG, UNK, UNKNOWN
  3. INDAPAMIDE (INDAPAMIDE) [Suspect]
     Indication: DIURETIC THERAPY
     Dosage: 2.5 MG, UNK, UNKNOWN
  4. GLICLAZIDE (GLICLAZIDE) [Concomitant]
  5. ISOPHANE INSULIN (ISOPHANE INSULIN) [Concomitant]
  6. PANTOPRAZOLE (PANTOPRAZOLE) [Concomitant]
  7. ALLOPURINOL (ALLOPURINOL) [Concomitant]
  8. FELODIPIN (FELODIPINE) [Concomitant]
  9. WARFARIN (WARFARIN) [Concomitant]
  10. ATORVASTATIN (ATORVASTATIN) [Concomitant]
  11. FLUOXETINE (FLUOXETINE) [Concomitant]

REACTIONS (11)
  - Renal failure acute [None]
  - Lactic acidosis [None]
  - Chest pain [None]
  - Nausea [None]
  - Vomiting [None]
  - Dehydration [None]
  - Blood potassium increased [None]
  - Blood chloride decreased [None]
  - Blood bicarbonate decreased [None]
  - PCO2 decreased [None]
  - Blood lactic acid increased [None]
